FAERS Safety Report 14455532 (Version 2)
Quarter: 2018Q2

REPORT INFORMATION
  Report Type: Spontaneous
  Country: ES (occurrence: ES)
  Receive Date: 20180129
  Receipt Date: 20180412
  Transmission Date: 20180711
  Serious: Yes (Hospitalization)
  Sender: FDA-Public Use
  Company Number: ES-MYLANLABS-2018M1005136

PATIENT
  Age: 69 Year
  Sex: Female

DRUGS (1)
  1. OLMESARTAN MEDOXOMIL. [Suspect]
     Active Substance: OLMESARTAN MEDOXOMIL
     Indication: HYPERTENSION
     Dosage: 40 MG, UNK
     Route: 065

REACTIONS (6)
  - Sprue-like enteropathy [Recovering/Resolving]
  - Weight decreased [Unknown]
  - Renal failure [Recovering/Resolving]
  - Abdominal pain [Recovering/Resolving]
  - Metabolic acidosis [Unknown]
  - Diarrhoea [Unknown]
